FAERS Safety Report 25686001 (Version 1)
Quarter: 2025Q3

REPORT INFORMATION
  Report Type: Spontaneous
  Country: US (occurrence: None)
  Receive Date: 20250815
  Receipt Date: 20250815
  Transmission Date: 20251020
  Serious: No
  Sender: FDA-CTU
  Company Number: None

PATIENT
  Sex: Male
  Weight: 99.79 kg

DRUGS (3)
  1. UNSPECIFIED INGREDIENT [Suspect]
     Active Substance: UNSPECIFIED INGREDIENT
  2. risperodone/ risperdal [Concomitant]
  3. depakote/ divaproex [Concomitant]

REACTIONS (4)
  - Palpitations [None]
  - Headache [None]
  - Emotional distress [None]
  - Product contamination [None]
